FAERS Safety Report 26119643 (Version 2)
Quarter: 2025Q4

REPORT INFORMATION
  Report Type: Report from Study
  Country: US (occurrence: US)
  Receive Date: 20251204
  Receipt Date: 20251209
  Transmission Date: 20260118
  Serious: Yes (Death, Hospitalization, Other)
  Sender: ABBVIE
  Company Number: US-ABBVIE-6574541

PATIENT
  Age: 71 Year
  Sex: Female

DRUGS (1)
  1. CREON [Suspect]
     Active Substance: PANCRELIPASE AMYLASE\PANCRELIPASE LIPASE\PANCRELIPASE PROTEASE
     Indication: Product used for unknown indication
     Dosage: 3000 UNIT
     Route: 048
     Dates: start: 20250726, end: 202511

REACTIONS (9)
  - Pleural effusion [Fatal]
  - Pericarditis [Fatal]
  - Pancreatitis necrotising [Fatal]
  - Vomiting [Not Recovered/Not Resolved]
  - Nausea [Not Recovered/Not Resolved]
  - Dyspnoea [Not Recovered/Not Resolved]
  - Splenic thrombosis [Fatal]
  - Food intolerance [Not Recovered/Not Resolved]
  - Portal vein thrombosis [Fatal]

NARRATIVE: CASE EVENT DATE: 20250101
